FAERS Safety Report 17367809 (Version 1)
Quarter: 2020Q1

REPORT INFORMATION
  Report Type: Spontaneous
  Country: US (occurrence: US)
  Receive Date: 20200203
  Receipt Date: 20200203
  Transmission Date: 20200409
  Serious: Yes (Hospitalization)
  Sender: FDA-Public Use
  Company Number: None

PATIENT
  Sex: Female

DRUGS (11)
  1. OTEZLA [Concomitant]
     Active Substance: APREMILAST
  2. OMEPRAZOLE. [Concomitant]
     Active Substance: OMEPRAZOLE
  3. BRIMONIDINE 0.15% SOL [Concomitant]
  4. IBANDRONATE [Concomitant]
     Active Substance: IBANDRONATE SODIUM
  5. ROSUVASTATIN. [Concomitant]
     Active Substance: ROSUVASTATIN
  6. XELJANZ XR [Suspect]
     Active Substance: TOFACITINIB CITRATE
     Indication: RHEUMATOID ARTHRITIS
     Route: 048
     Dates: start: 20171107
  7. ATENOLOL. [Concomitant]
     Active Substance: ATENOLOL
  8. PIOGLITAZONE. [Concomitant]
     Active Substance: PIOGLITAZONE
  9. LEVOTHYROXIN [Concomitant]
     Active Substance: LEVOTHYROXINE
  10. ALPRAZOLAM. [Concomitant]
     Active Substance: ALPRAZOLAM
  11. GABAPENTIN. [Concomitant]
     Active Substance: GABAPENTIN

REACTIONS (6)
  - Gait inability [None]
  - Arthralgia [None]
  - Impaired work ability [None]
  - Wheelchair user [None]
  - Skin fissures [None]
  - Rheumatoid arthritis [None]
